FAERS Safety Report 7469453-9 (Version None)
Quarter: 2011Q2

REPORT INFORMATION
  Report Type: 
  Country: None (occurrence: None)
  Receive Date: 20110506
  Receipt Date: 20110506
  Transmission Date: 20111010
  Serious: Yes (Hospitalization)
  Sender: FDA-Public Use
  Company Number: None

PATIENT
  Age: 37 Year
  Weight: 65.9 kg

DRUGS (2)
  1. SOLU-MEDROL [Suspect]
     Indication: INJURY
     Dosage: ONE TIME DOSE
     Dates: start: 20110417, end: 20110417
  2. SOLU-MEDROL [Suspect]

REACTIONS (1)
  - MECHANICAL VENTILATION [None]
